FAERS Safety Report 13703125 (Version 1)
Quarter: 2017Q2

REPORT INFORMATION
  Report Type: Spontaneous
  Country: FR (occurrence: FR)
  Receive Date: 20170629
  Receipt Date: 20170629
  Transmission Date: 20170830
  Serious: Yes (Disabling)
  Sender: FDA-Public Use
  Company Number: FR-BAYER-2017-125351

PATIENT
  Age: 45 Year
  Sex: Female

DRUGS (1)
  1. MIRENA [Suspect]
     Active Substance: LEVONORGESTREL
     Indication: CONTRACEPTION
     Dosage: 20 MCG/24HR, CONT
     Route: 015
     Dates: start: 20170130, end: 20170512

REACTIONS (16)
  - Weight increased [Not Recovered/Not Resolved]
  - Acne [Not Recovered/Not Resolved]
  - Breast pain [Not Recovered/Not Resolved]
  - Anxiety [Not Recovered/Not Resolved]
  - Fatigue [Not Recovered/Not Resolved]
  - Migraine [Not Recovered/Not Resolved]
  - Loss of libido [Not Recovered/Not Resolved]
  - Depression [Not Recovered/Not Resolved]
  - Irritability [Not Recovered/Not Resolved]
  - Alopecia [Not Recovered/Not Resolved]
  - Vertigo [Not Recovered/Not Resolved]
  - Abdominal distension [Not Recovered/Not Resolved]
  - Myalgia [Not Recovered/Not Resolved]
  - Asthenia [Not Recovered/Not Resolved]
  - Back pain [Not Recovered/Not Resolved]
  - Vision blurred [Not Recovered/Not Resolved]

NARRATIVE: CASE EVENT DATE: 20170130
